FAERS Safety Report 4402277-5 (Version None)
Quarter: 2004Q3

REPORT INFORMATION
  Report Type: 
  Country: None (occurrence: None)
  Receive Date: 20040720
  Receipt Date: 20040716
  Transmission Date: 20050211
  Serious: Yes (Other)
  Sender: FDA-Public Use
  Company Number: US-GLAXOSMITHKLINE-A0518741A

PATIENT
  Sex: Female

DRUGS (4)
  1. ADVAIR DISKUS 100/50 [Suspect]
     Indication: ASTHMA
  2. PROVENTIL [Concomitant]
  3. CLARINEX [Concomitant]
  4. NASONEX [Concomitant]

REACTIONS (6)
  - BLOOD GLUCOSE DECREASED [None]
  - COUGH [None]
  - EAR INFECTION [None]
  - HEART RATE INCREASED [None]
  - PNEUMONIA [None]
  - SINUSITIS [None]
